FAERS Safety Report 5247861-4 (Version None)
Quarter: 2007Q1

REPORT INFORMATION
  Report Type: 
  Country: None (occurrence: None)
  Receive Date: 20070227
  Receipt Date: 20070227
  Transmission Date: 20070707
  Serious: Yes (Other)
  Sender: FDA-Public Use
  Company Number: None

PATIENT
  Age: 16 Year
  Sex: Male
  Weight: 63.5036 kg

DRUGS (3)
  1. ACCUTANE [Suspect]
     Indication: ACNE
     Dosage: PO
     Route: 048
     Dates: start: 20050501, end: 20060601
  2. METADATE  20 MG CD [Suspect]
     Dosage: 2 AM PO
     Route: 048
     Dates: start: 20040527, end: 20050606
  3. METADATE CD [Concomitant]

REACTIONS (2)
  - BONE DISORDER [None]
  - GROWTH RETARDATION [None]
